FAERS Safety Report 25732758 (Version 1)
Quarter: 2025Q3

REPORT INFORMATION
  Report Type: Spontaneous
  Country: JP (occurrence: JP)
  Receive Date: 20250827
  Receipt Date: 20250827
  Transmission Date: 20251021
  Serious: Yes (Other)
  Sender: GLAXOSMITHKLINE
  Company Number: JP-GSK-JP2025047706

PATIENT
  Age: 54 Year
  Sex: Female

DRUGS (5)
  1. NUCALA [Suspect]
     Active Substance: MEPOLIZUMAB
     Indication: Eosinophilic granulomatosis with polyangiitis
     Dosage: 300 MG, Q4W
  2. PREDNISOLONE [Concomitant]
     Active Substance: PREDNISOLONE
     Indication: Eosinophilic granulomatosis with polyangiitis
     Dosage: 50 MG, QD
  3. PREDNISOLONE [Concomitant]
     Active Substance: PREDNISOLONE
     Dosage: GRADUALLY REDUCED TO 5 MG/DAY
  4. PREDNISOLONE [Concomitant]
     Active Substance: PREDNISOLONE
  5. METHYLPREDNISOLONE [Concomitant]
     Active Substance: METHYLPREDNISOLONE
     Indication: Eosinophilic granulomatosis with polyangiitis

REACTIONS (5)
  - Eosinophilic granulomatosis with polyangiitis [Unknown]
  - Asthma [Recovered/Resolved]
  - Dyspnoea [Recovered/Resolved]
  - Cough [Recovered/Resolved]
  - Therapeutic response decreased [Unknown]
